FAERS Safety Report 5884685-9 (Version None)
Quarter: 2008Q3

REPORT INFORMATION
  Report Type: 
  Country: None (occurrence: None)
  Receive Date: 20080916
  Receipt Date: 20080905
  Transmission Date: 20090109
  Serious: Yes (Other)
  Sender: FDA-Public Use
  Company Number: BE-AMGEN-UK305847

PATIENT

DRUGS (2)
  1. NEULASTA [Suspect]
     Indication: DRUG USE FOR UNKNOWN INDICATION
  2. TAXOTERE [Concomitant]

REACTIONS (2)
  - DRUG ADMINISTRATION ERROR [None]
  - WHITE BLOOD CELL COUNT INCREASED [None]
